FAERS Safety Report 8620685-3 (Version None)
Quarter: 2012Q3

REPORT INFORMATION
  Report Type: 
  Country: None (occurrence: None)
  Receive Date: 20120824
  Receipt Date: 20120810
  Transmission Date: 20120928
  Serious: Yes (Other)
  Sender: FDA-Public Use
  Company Number: JP-VERTEX PHARMACEUTICAL INC.-AE-2012-005165

PATIENT
  Age: 39 Year
  Sex: Female

DRUGS (8)
  1. PEGINTERFERON ALFA-2B [Suspect]
     Indication: HEPATITIS C
     Dosage: 1.5 A?G/KG, UNK
     Route: 058
     Dates: start: 20120217, end: 20120705
  2. PEGINTERFERON ALFA-2B [Suspect]
     Dosage: 1.1 A?G/KG, UNK
     Route: 058
     Dates: start: 20120720, end: 20120726
  3. REBETOL [Suspect]
     Dosage: 600 MG, QD
     Route: 048
     Dates: start: 20120525, end: 20120802
  4. VX-950 [Suspect]
     Indication: HEPATITIS C
     Dosage: 2250 MG, QD
     Route: 048
     Dates: start: 20120217, end: 20120322
  5. VX-950 [Suspect]
     Dosage: 1500 MG, QD
     Route: 048
     Dates: start: 20120323, end: 20120510
  6. PEGINTERFERON ALFA-2B [Suspect]
     Dosage: 1.3 A?G/KG, UNK
     Route: 058
     Dates: start: 20120727, end: 20120802
  7. PEGINTERFERON ALFA-2B [Suspect]
     Dosage: 1.3 A?G/KG, UNK
     Route: 058
     Dates: start: 20120706, end: 20120719
  8. REBETOL [Suspect]
     Indication: HEPATITIS C
     Dosage: 400 MG, UNK
     Route: 048
     Dates: start: 20120217

REACTIONS (3)
  - NEUTROPHIL COUNT DECREASED [None]
  - RASH [None]
  - ANAEMIA [None]
